FAERS Safety Report 5343759-1 (Version None)
Quarter: 2007Q2

REPORT INFORMATION
  Report Type: 
  Country: None (occurrence: None)
  Receive Date: 20070531
  Receipt Date: 20070531
  Transmission Date: 20071010
  Serious: Yes (Other)
  Sender: FDA-Public Use
  Company Number: None

PATIENT
  Sex: Female
  Weight: 65.318 kg

DRUGS (1)
  1. ESTRADIOL [Suspect]
     Indication: URTICARIA
     Dosage: 0.1MG/24HR TRANSD.
     Route: 062

REACTIONS (1)
  - URTICARIA [None]
